FAERS Safety Report 5362421-2 (Version None)
Quarter: 2007Q2

REPORT INFORMATION
  Report Type: 
  Country: None (occurrence: None)
  Receive Date: 20070619
  Receipt Date: 20060626
  Transmission Date: 20071010
  Serious: Yes (Hospitalization)
  Sender: FDA-Public Use
  Company Number: NL-ASTRAZENECA-2006SE02895

PATIENT
  Age: 30448 Day
  Sex: Female

DRUGS (12)
  1. STUDY PROCEDURE [Suspect]
     Indication: PEPTIC ULCER HAEMORRHAGE
     Dates: start: 20060514
  2. ESOMEPRAZOLE MAGNESIUM [Suspect]
     Indication: PEPTIC ULCER HAEMORRHAGE
     Route: 042
     Dates: start: 20060514, end: 20060514
  3. ESOMEPRAZOLE MAGNESIUM [Suspect]
     Route: 042
     Dates: start: 20060514, end: 20060517
  4. ESOMEPRAZOLE MAGNESIUM [Suspect]
     Route: 048
     Dates: start: 20060517, end: 20060615
  5. MONOCEDOCARD RETARD [Concomitant]
     Indication: ANGINA PECTORIS
     Route: 048
  6. VERAPAMIL [Concomitant]
     Indication: ATRIAL FIBRILLATION
     Route: 048
  7. METFORMIN HCL [Concomitant]
     Indication: DIABETES MELLITUS
     Route: 048
  8. GLICLAZIDE [Concomitant]
     Indication: DIABETES MELLITUS
     Route: 048
  9. EPINEPHRINE [Concomitant]
     Indication: GASTRIC ULCER
     Dosage: ROUTE: SUBMUCCOSAL
     Route: 050
     Dates: start: 20060514, end: 20060514
  10. AMARYL [Concomitant]
     Indication: DIABETES MELLITUS
     Route: 048
     Dates: end: 20060514
  11. ASPIRIN [Concomitant]
     Indication: ATRIAL FIBRILLATION
     Route: 048
     Dates: end: 20060514
  12. FUROSEMIDE [Concomitant]
     Indication: TRANSFUSION
     Route: 042
     Dates: start: 20060515, end: 20060515

REACTIONS (1)
  - PHLEBITIS [None]
